FAERS Safety Report 11835228 (Version 3)
Quarter: 2016Q1

REPORT INFORMATION
  Report Type: Report from Study
  Country: IT (occurrence: IT)
  Receive Date: 20151215
  Receipt Date: 20160304
  Transmission Date: 20160525
  Serious: Yes (Other)
  Sender: FDA-Public Use
  Company Number: IT-ACCORD-036120

PATIENT
  Age: 61 Year
  Sex: Female

DRUGS (5)
  1. ZALTRAP [Suspect]
     Active Substance: ZIV-AFLIBERCEPT
     Indication: COLORECTAL CANCER
     Dosage: PT.RECEIVED 1ST CYCLE ON 20-APR AND 10TH CYCLE ON 07-OCT-2015
     Route: 042
     Dates: start: 20151007
  2. IRINOTECAN [Suspect]
     Active Substance: IRINOTECAN
     Indication: COLORECTAL CANCER
     Dosage: PT.RECEIVED 1ST CYCLE 300 MG IRINOTECAN ON 20-APR AND 10TH CYCLE 240 MG IRINOTECAN ON 07-OCT-2015
     Route: 042
     Dates: start: 20151007
  3. FOLINIC ACID [Suspect]
     Active Substance: LEUCOVORIN
     Indication: COLORECTAL CANCER
     Dosage: PT.RECEIVED 1ST CYCLE FOLINIC ACID 330 MG ON 20-APR AND 10TH CYCLE FOLINIC ACID 260 MG ON07-OCT-2015
     Route: 042
     Dates: start: 20151007
  4. GRANULOCYTE COLONY STIMULATING [Concomitant]
     Active Substance: GRANULOCYTE COLONY-STIMULATING FACTOR NOS
     Dates: start: 20150625
  5. FLUOROURACIL. [Suspect]
     Active Substance: FLUOROURACIL
     Indication: COLORECTAL CANCER
     Dosage: 1ST CYCLE 5-FU 660 IV BOLUS AND 3900 MG IV DRIP ON 20-APR
     Route: 040
     Dates: start: 20151007

REACTIONS (5)
  - Inflammation [Recovering/Resolving]
  - Tracheitis [Recovering/Resolving]
  - Stomatitis [Recovering/Resolving]
  - Cough [Recovering/Resolving]
  - Rhinitis [Recovering/Resolving]

NARRATIVE: CASE EVENT DATE: 20151007
